FAERS Safety Report 13674250 (Version 2)
Quarter: 2017Q3

REPORT INFORMATION
  Report Type: Spontaneous
  Country: MX (occurrence: MX)
  Receive Date: 20170621
  Receipt Date: 20170702
  Transmission Date: 20171127
  Serious: Yes (Death)
  Sender: FDA-Public Use
  Company Number: MX-ROCHE-1951378

PATIENT
  Age: 6 Year
  Sex: Female

DRUGS (4)
  1. ANAPSIQUE [Suspect]
     Active Substance: AMITRIPTYLINE HYDROCHLORIDE
     Indication: PRODUCT USED FOR UNKNOWN INDICATION
     Dosage: 60 TABLETS
     Route: 048
     Dates: start: 20170606, end: 20170606
  2. CARBAMACEPINA [Suspect]
     Active Substance: CARBAMAZEPINE
     Indication: PRODUCT USED FOR UNKNOWN INDICATION
     Dosage: 40 TABLETS
     Route: 048
     Dates: start: 20170606, end: 20170606
  3. IRBESARTAN. [Suspect]
     Active Substance: IRBESARTAN
     Indication: PRODUCT USED FOR UNKNOWN INDICATION
     Dosage: 112 TABLETS
     Route: 048
     Dates: start: 20170606, end: 20170606
  4. RIVOTRIL [Suspect]
     Active Substance: CLONAZEPAM
     Indication: PRODUCT USED FOR UNKNOWN INDICATION
     Dosage: 100 TABLETS
     Route: 048
     Dates: start: 20170606, end: 20170606

REACTIONS (2)
  - Completed suicide [Fatal]
  - Poisoning [Fatal]

NARRATIVE: CASE EVENT DATE: 20170606
